FAERS Safety Report 7152911-4 (Version None)
Quarter: 2010Q4

REPORT INFORMATION
  Report Type: 
  Country: None (occurrence: None)
  Receive Date: 20101213
  Receipt Date: 20101129
  Transmission Date: 20110411
  Serious: Yes (Other)
  Sender: FDA-Public Use
  Company Number: PHHY2010BR81851

PATIENT
  Sex: Female
  Weight: 54 kg

DRUGS (3)
  1. CATAFLAM [Suspect]
     Dosage: UNK
  2. PREDNISONE [Concomitant]
     Dosage: 5 MG
  3. RANITIDINE [Concomitant]
     Dosage: 150 MG

REACTIONS (2)
  - DRUG HYPERSENSITIVITY [None]
  - RHEUMATOID ARTHRITIS [None]
